FAERS Safety Report 6110379-0 (Version None)
Quarter: 2009Q1

REPORT INFORMATION
  Report Type: 
  Country: None (occurrence: None)
  Receive Date: 20090309
  Receipt Date: 20090309
  Transmission Date: 20090719
  Serious: No
  Sender: FDA-Public Use
  Company Number: None

PATIENT
  Age: 63 Year
  Sex: Female
  Weight: 55.3388 kg

DRUGS (1)
  1. ACTONEL [Suspect]
     Indication: OSTEOPOROSIS
     Dosage: ONE 150 MG TABLET ONCE A MONTH PO
     Route: 048
     Dates: start: 20090302, end: 20090302

REACTIONS (10)
  - ABDOMINAL PAIN [None]
  - BLOOD PRESSURE INCREASED [None]
  - BLOOD URINE [None]
  - CHILLS [None]
  - DYSURIA [None]
  - HEADACHE [None]
  - NAUSEA [None]
  - POLLAKIURIA [None]
  - PYURIA [None]
  - ULCER [None]
